FAERS Safety Report 14360324 (Version 13)
Quarter: 2022Q1

REPORT INFORMATION
  Report Type: Spontaneous
  Country: PL (occurrence: PL)
  Receive Date: 20180106
  Receipt Date: 20220318
  Transmission Date: 20220424
  Serious: Yes (Life-Threatening, Hospitalization, Other)
  Sender: FDA-Public Use
  Company Number: None

PATIENT
  Age: 85 Year
  Sex: Female

DRUGS (33)
  1. CARVEDILOL [Suspect]
     Active Substance: CARVEDILOL
     Indication: Product used for unknown indication
     Dosage: FREQUENCY: 6.25 DAYS
     Route: 065
  2. CARVEDILOL [Suspect]
     Active Substance: CARVEDILOL
     Dosage: FREQUENCY: 6.25 DAYS6.25 AT THE MORNING, THEN THEDOSE WAS REDUCED TO DAILY DOSE OF 3.125 MG
     Route: 065
  3. CARVEDILOL [Suspect]
     Active Substance: CARVEDILOL
     Dosage: 6.25 MILLIGRAM DAILY; QD, IN THE MORNING
     Route: 065
  4. CARVEDILOL [Suspect]
     Active Substance: CARVEDILOL
     Dosage: DOSE WAS REDUCED TO DAILY DOSE OF 3.125 MG
     Route: 065
  5. CARVEDILOL [Suspect]
     Active Substance: CARVEDILOL
     Dosage: FREQUENCY: 6.25 DAYS(IN THE MORNING)
     Route: 065
  6. CARVEDILOL [Suspect]
     Active Substance: CARVEDILOL
     Dosage: DOSE WAS REDUCED TO DAILY DOSE OF 3.125 MG
  7. CARVEDILOL [Suspect]
     Active Substance: CARVEDILOL
     Dosage: 6.25 MILLIGRAM DAILY; QD, IN THE MORNING
     Route: 065
  8. CARVEDILOL [Suspect]
     Active Substance: CARVEDILOL
     Dosage: FREQUENCY: 6.25 DAYS6.25 AT THE MORNING, THEN THE DOSE WAS REDUCED TO DAILY DOSE OF 3.125 MG
     Route: 065
  9. CARVEDILOL [Suspect]
     Active Substance: CARVEDILOL
     Dosage: FREQUENCY: 6.25 DAYS(IN THE MORNING)
     Route: 065
  10. CARVEDILOL [Suspect]
     Active Substance: CARVEDILOL
     Dosage: FREQUENCY: 6.25 DAYS6.25 AT THE MORNING, THEN THE DOSE WAS REDUCED TO DAILY DOSE OF 3.125 MG
     Route: 065
  11. SERTRALINE [Suspect]
     Active Substance: SERTRALINE HYDROCHLORIDE
     Indication: Depression
     Dosage: FREQUENCY: 100 DAYS(IN THE MORNING),DAILY
     Route: 065
  12. ATORVASTATIN [Suspect]
     Active Substance: ATORVASTATIN
     Indication: Product used for unknown indication
     Dosage: FREQUENCY: 20 DAYS AT BED TIME)
     Route: 065
  13. ATORVASTATIN [Suspect]
     Active Substance: ATORVASTATIN
     Dosage: 20 MILLIGRAM DAILY; FREQUENCY: 20 DAYS, AT BED TIME
     Route: 065
  14. ATORVASTATIN [Suspect]
     Active Substance: ATORVASTATIN
     Dosage: BEFORE GOING TO BED
     Route: 065
  15. ATORVASTATIN [Suspect]
     Active Substance: ATORVASTATIN
     Dosage: BEFORE GOING TO BED
  16. ATORVASTATIN [Suspect]
     Active Substance: ATORVASTATIN
     Dosage: FREQUENCY: 20 DAYS AT BED TIME)
     Route: 065
  17. ATORVASTATIN [Suspect]
     Active Substance: ATORVASTATIN
     Dosage: 20 MILLIGRAM DAILY; FREQUENCY: 20 DAYS, AT BED TIME
     Route: 065
  18. ATORVASTATIN [Suspect]
     Active Substance: ATORVASTATIN
     Dosage: FREQUENCY: 20 DAYS AT BED TIME)
     Route: 065
  19. DONEPEZIL [Suspect]
     Active Substance: DONEPEZIL
     Indication: Product used for unknown indication
     Dosage: FREQUENCY: 10 DAYS IN THE MORNING,DAILY
     Route: 065
  20. MIANSERIN HYDROCHLORIDE [Interacting]
     Active Substance: MIANSERIN HYDROCHLORIDE
     Indication: Product used for unknown indication
     Dosage: FREQUENCY: 30 D AT BEDTIME
     Route: 065
  21. TORSEMIDE [Suspect]
     Active Substance: TORSEMIDE
     Indication: Product used for unknown indication
     Dosage: FREQUENCY: 5 DAYS (IN THE MORNING)
     Route: 065
  22. ZOFENOPRIL [Suspect]
     Active Substance: ZOFENOPRIL
     Indication: Product used for unknown indication
     Dosage: FREQUENCY: 7.5 DAYS IN THE MORNING
     Route: 065
  23. QUETIAPINE FUMARATE [Suspect]
     Active Substance: QUETIAPINE FUMARATE
     Indication: Product used for unknown indication
     Dosage: FREQUENCY: 50 DAYS(BEFORE BED TIME)
     Route: 065
  24. DIETARY SUPPLEMENT\HERBALS\MILK THISTLE [Suspect]
     Active Substance: DIETARY SUPPLEMENT\HERBALS\MILK THISTLE
     Indication: Alanine aminotransferase increased
     Dosage: 420 MILLIGRAM
     Route: 065
  25. DIETARY SUPPLEMENT\HERBALS\MILK THISTLE [Suspect]
     Active Substance: DIETARY SUPPLEMENT\HERBALS\MILK THISTLE
     Dosage: GP DOCTOR RECOMMENDED THREE TIMES A DAY AS A HEPATOPROTECTOR DRUG
     Route: 065
  26. DIETARY SUPPLEMENT\HERBALS\MILK THISTLE [Suspect]
     Active Substance: DIETARY SUPPLEMENT\HERBALS\MILK THISTLE
     Dosage: 140 MG,TID,8 HOUR
     Route: 065
  27. DIETARY SUPPLEMENT\HERBALS\MILK THISTLE [Suspect]
     Active Substance: DIETARY SUPPLEMENT\HERBALS\MILK THISTLE
     Dosage: UNK, Q8H (1)
     Route: 065
  28. DIETARY SUPPLEMENT\HERBALS\MILK THISTLE [Suspect]
     Active Substance: DIETARY SUPPLEMENT\HERBALS\MILK THISTLE
     Dosage: 140 MG, QD; FREQUENCY 420 DAYS (140 MG, TID), SUBSTANCE REPORTED AS: SILYBUM MARIANUM
     Route: 048
  29. DIETARY SUPPLEMENT\HERBALS\MILK THISTLE [Suspect]
     Active Substance: DIETARY SUPPLEMENT\HERBALS\MILK THISTLE
     Dosage: GP DOCTOR RECOMMENDED THREE TIMES A DAY AS A HEPATOPROTECTOR DRUG
  30. DIETARY SUPPLEMENT\HERBALS\MILK THISTLE [Suspect]
     Active Substance: DIETARY SUPPLEMENT\HERBALS\MILK THISTLE
     Dosage: UNK, Q8H (1)
  31. DIETARY SUPPLEMENT\HERBALS\MILK THISTLE [Suspect]
     Active Substance: DIETARY SUPPLEMENT\HERBALS\MILK THISTLE
     Dosage: 140 MG, QD; FREQUENCY 420 DAYS (140 MG, TID), SUBSTANCE REPORTED AS: SILYBUM MARIANUM
     Route: 048
  32. DIETARY SUPPLEMENT\HERBALS\MILK THISTLE [Suspect]
     Active Substance: DIETARY SUPPLEMENT\HERBALS\MILK THISTLE
     Dosage: FREQUENCY: 420 DAYS(140 MG, TID)
     Route: 048
  33. DIETARY SUPPLEMENT\HERBALS\MILK THISTLE [Interacting]
     Active Substance: DIETARY SUPPLEMENT\HERBALS\MILK THISTLE
     Indication: Alanine aminotransferase increased
     Dosage: 420 MILLIGRAM

REACTIONS (23)
  - Hypokalaemia [Recovered/Resolved]
  - Bradycardia [Recovered/Resolved]
  - Loss of consciousness [Recovered/Resolved]
  - Liver function test increased [Recovered/Resolved]
  - Abdominal pain [Recovered/Resolved]
  - Nausea [Recovered/Resolved]
  - Muscle contractions involuntary [Recovered/Resolved]
  - Diarrhoea [Recovered/Resolved]
  - Hyperhidrosis [Recovered/Resolved]
  - Drug interaction [Recovered/Resolved]
  - Muscle contracture [Recovered/Resolved]
  - Muscle spasms [Recovered/Resolved]
  - Dry mouth [Recovered/Resolved]
  - Somnolence [Recovered/Resolved]
  - Musculoskeletal chest pain [Recovered/Resolved]
  - Alanine aminotransferase increased [Recovering/Resolving]
  - Syncope [Recovered/Resolved]
  - Abdominal pain upper [Recovered/Resolved]
  - Sedation complication [Recovered/Resolved]
  - Hepatitis [Recovered/Resolved]
  - Liver disorder [Recovered/Resolved]
  - Hepatic pain [Recovered/Resolved]
  - Herbal interaction [Unknown]
